FAERS Safety Report 7231216-7 (Version None)
Quarter: 2011Q1

REPORT INFORMATION
  Report Type: 
  Country: None (occurrence: None)
  Receive Date: 20110118
  Receipt Date: 20110112
  Transmission Date: 20110831
  Serious: Yes (Other)
  Sender: FDA-Public Use
  Company Number: B0677043A

PATIENT
  Sex: Female

DRUGS (2)
  1. ISOPTIN [Concomitant]
     Indication: CLUSTER HEADACHE
     Route: 048
     Dates: start: 20070101
  2. IMIJECT [Suspect]
     Indication: CLUSTER HEADACHE
     Route: 058
     Dates: start: 20070101, end: 20100201

REACTIONS (1)
  - VISUAL FIELD DEFECT [None]
